FAERS Safety Report 13202895 (Version 1)
Quarter: 2017Q1

REPORT INFORMATION
  Report Type: Report from Study
  Country: JP (occurrence: JP)
  Receive Date: 20170209
  Receipt Date: 20170209
  Transmission Date: 20170428
  Serious: Yes (Death)
  Sender: FDA-Public Use
  Company Number: JP-CIPLA LTD.-2017JP01529

PATIENT

DRUGS (2)
  1. CISPLATIN. [Suspect]
     Active Substance: CISPLATIN
     Indication: NON-SMALL CELL LUNG CANCER
     Dosage: 80 MG/M2, ON DAY 1, EVERY 4 WEEKS
     Route: 065
  2. IRINOTECAN [Suspect]
     Active Substance: IRINOTECAN
     Indication: NON-SMALL CELL LUNG CANCER
     Dosage: 60 MG/M2, ON DAYS 1, 8, 15 EVERY 4 WEEKS
     Route: 065

REACTIONS (1)
  - Cerebral haemorrhage [Fatal]
